FAERS Safety Report 7810175-X (Version None)
Quarter: 2011Q4

REPORT INFORMATION
  Report Type: 
  Country: None (occurrence: None)
  Receive Date: 20111012
  Receipt Date: 20111003
  Transmission Date: 20120403
  Serious: Yes (Other)
  Sender: FDA-Public Use
  Company Number: US-JNJFOC-20111001511

PATIENT
  Sex: Female
  Weight: 68.04 kg

DRUGS (1)
  1. REMICADE [Suspect]
     Indication: RHEUMATOID ARTHRITIS
     Route: 042
     Dates: start: 20101001

REACTIONS (6)
  - IRITIS [None]
  - CATARACT [None]
  - UVEITIS [None]
  - RETINAL DETACHMENT [None]
  - SCLERITIS [None]
  - EYE OEDEMA [None]
